FAERS Safety Report 24223635 (Version 2)
Quarter: 2024Q3

REPORT INFORMATION
  Report Type: Spontaneous
  Country: JP (occurrence: JP)
  Receive Date: 20240819
  Receipt Date: 20240822
  Transmission Date: 20241016
  Serious: Yes (Other)
  Sender: SANOFI AVENTIS
  Company Number: None

PATIENT
  Age: 75 Year
  Sex: Male

DRUGS (15)
  1. OXALIPLATIN [Suspect]
     Active Substance: OXALIPLATIN
     Indication: Metastases to liver
     Dosage: UNK (RESUMED SOX + TMAB POSTOPERATIVELY)
  2. OXALIPLATIN [Suspect]
     Active Substance: OXALIPLATIN
     Indication: Metastases to lymph nodes
     Dosage: UNK UNK, QCY
  3. OXALIPLATIN [Suspect]
     Active Substance: OXALIPLATIN
     Indication: Gastric cancer stage IV
  4. OXALIPLATIN [Suspect]
     Active Substance: OXALIPLATIN
     Indication: Microsatellite instability cancer
  5. OXALIPLATIN [Suspect]
     Active Substance: OXALIPLATIN
     Indication: HER2 positive gastric cancer
  6. TRASTUZUMAB [Suspect]
     Active Substance: TRASTUZUMAB
     Indication: Metastases to liver
     Dosage: UNK (RESUMED SOX + TMAB POSTOPERATIVELY)
  7. TRASTUZUMAB [Suspect]
     Active Substance: TRASTUZUMAB
     Indication: Metastases to lymph nodes
     Dosage: UNK UNK, QCY
  8. TRASTUZUMAB [Suspect]
     Active Substance: TRASTUZUMAB
     Indication: Gastric cancer stage IV
  9. TRASTUZUMAB [Suspect]
     Active Substance: TRASTUZUMAB
     Indication: HER2 positive gastric cancer
  10. TRASTUZUMAB [Suspect]
     Active Substance: TRASTUZUMAB
     Indication: Microsatellite instability cancer
  11. GIMERACIL\OTERACIL\TEGAFUR [Suspect]
     Active Substance: GIMERACIL\OTERACIL POTASSIUM\TEGAFUR
     Indication: Gastric cancer stage IV
     Dosage: UNK (RESUMED SOX + TMAB POSTOPERATIVELY)
  12. GIMERACIL\OTERACIL\TEGAFUR [Suspect]
     Active Substance: GIMERACIL\OTERACIL POTASSIUM\TEGAFUR
     Indication: Metastases to lymph nodes
     Dosage: UNK UNK, QCY
  13. GIMERACIL\OTERACIL\TEGAFUR [Suspect]
     Active Substance: GIMERACIL\OTERACIL POTASSIUM\TEGAFUR
     Indication: Metastases to liver
  14. GIMERACIL\OTERACIL\TEGAFUR [Suspect]
     Active Substance: GIMERACIL\OTERACIL POTASSIUM\TEGAFUR
     Indication: Microsatellite instability cancer
  15. GIMERACIL\OTERACIL\TEGAFUR [Suspect]
     Active Substance: GIMERACIL\OTERACIL POTASSIUM\TEGAFUR
     Indication: HER2 positive gastric cancer

REACTIONS (3)
  - Bacteraemia [Unknown]
  - Neutropenia [Unknown]
  - Mucosal inflammation [Unknown]
